FAERS Safety Report 18938149 (Version 2)
Quarter: 2021Q1

REPORT INFORMATION
  Report Type: Report from Study
  Country: US (occurrence: US)
  Receive Date: 20210224
  Receipt Date: 20210304
  Transmission Date: 20210420
  Serious: Yes (Hospitalization)
  Sender: FDA-Public Use
  Company Number: US-PFIZER INC-2021168106

PATIENT
  Age: 32 Year
  Sex: Female
  Weight: 73.4 kg

DRUGS (3)
  1. PEMBROLIZUMAB. [Suspect]
     Active Substance: PEMBROLIZUMAB
     Indication: COLON CANCER METASTATIC
     Dosage: 200 MG, 1X/21 DAYS
     Dates: start: 20210209
  2. BINIMETINIB [Suspect]
     Active Substance: BINIMETINIB
     Indication: COLON CANCER METASTATIC
     Dosage: 45 MG (3 TABS), 2X/DAY
     Route: 048
     Dates: start: 20210212
  3. BEVACIZUMAB. [Concomitant]
     Active Substance: BEVACIZUMAB
     Dosage: 551 MG IN NS 100ML IVPB
     Route: 042

REACTIONS (2)
  - Sinus bradycardia [Unknown]
  - Syncope [Unknown]

NARRATIVE: CASE EVENT DATE: 20210216
